FAERS Safety Report 16707395 (Version 1)
Quarter: 2019Q4

REPORT INFORMATION
  Report Type: Spontaneous
  Country: US (occurrence: US)
  Receive Date: 20190814
  Receipt Date: 20190814
  Transmission Date: 20200122
  Serious: Yes (Hospitalization, Other)
  Sender: FDA-Public Use
  Company Number: None

PATIENT
  Age: 62 Year
  Sex: Female
  Weight: 79.38 kg

DRUGS (1)
  1. ENBREL [Suspect]
     Active Substance: ETANERCEPT
     Indication: PSORIASIS
     Dosage: DOSEAGE 5 UGM
     Route: 058
     Dates: end: 20190628

REACTIONS (2)
  - Metastases to central nervous system [None]
  - Non-small cell lung cancer [None]

NARRATIVE: CASE EVENT DATE: 20190603
